FAERS Safety Report 10420448 (Version 1)
Quarter: 2014Q3

REPORT INFORMATION
  Report Type: Spontaneous
  Country: US (occurrence: None)
  Receive Date: 20140701
  Receipt Date: 20140701
  Transmission Date: 20150326
  Serious: No
  Sender: FDA-Public Use
  Company Number: 1000067626

PATIENT
  Age: 53 Year
  Sex: Female

DRUGS (12)
  1. METFORMIN [Concomitant]
     Active Substance: METFORMIN HYDROCHLORIDE
  2. ALPRAZOLAM. [Concomitant]
     Active Substance: ALPRAZOLAM
  3. SYMLIN(PRAMLINTIDE ACETATE) [Concomitant]
  4. LINZESS [Suspect]
     Active Substance: LINACLOTIDE
     Indication: CONSTIPATION
     Route: 048
     Dates: start: 201312
  5. BUSPIRONE [Concomitant]
     Active Substance: BUSPIRONE HYDROCHLORIDE
  6. PROAIR HFA(SALBUTAMOL SULFATE) [Concomitant]
  7. AMITRIPTYLINE [Concomitant]
     Active Substance: AMITRIPTYLINE
  8. DILTIAZEM(DILTIAZEM HYDROCHLORIDE) [Concomitant]
  9. MIRALAX (POLYETHYL ENE GLYCOL 335020 [Concomitant]
  10. HUMALOG(INSULIN LISPRO) [Concomitant]
  11. LINZESS [Suspect]
     Active Substance: LINACLOTIDE
     Route: 048
     Dates: start: 201312
  12. ESCITALOPRAM(ESCITALOPRAM OXALATE) OXALATE) [Concomitant]

REACTIONS (4)
  - Nausea [None]
  - Flatulence [None]
  - Abdominal pain [None]
  - Drug effect decreased [None]

NARRATIVE: CASE EVENT DATE: 20140516
